FAERS Safety Report 24310934 (Version 1)
Quarter: 2024Q3

REPORT INFORMATION
  Report Type: Spontaneous
  Country: AT (occurrence: AT)
  Receive Date: 20240912
  Receipt Date: 20240912
  Transmission Date: 20241017
  Serious: Yes (Other)
  Sender: RANBAXY
  Company Number: AT-SUN PHARMACEUTICAL INDUSTRIES LTD-2024RR-467305

PATIENT
  Age: 68 Year
  Sex: Male
  Weight: 82 kg

DRUGS (7)
  1. METFORMIN\SITAGLIPTIN [Suspect]
     Active Substance: METFORMIN\SITAGLIPTIN
     Indication: Type 2 diabetes mellitus
     Dosage: SITAGLIPTIN/METFORMIN 50 MG/1000 MG
     Route: 065
     Dates: start: 20230503, end: 20230508
  2. Prosta Urgenin - Capsules [Concomitant]
     Indication: Product used for unknown indication
     Dosage: UNK
     Route: 065
  3. Pantoloc 40 mg - film-coated tablets [Concomitant]
     Indication: Product used for unknown indication
     Dosage: UNK
     Route: 065
  4. HYDROCHLOROTHIAZIDE\VALSARTAN [Concomitant]
     Active Substance: HYDROCHLOROTHIAZIDE\VALSARTAN
     Indication: Product used for unknown indication
     Dosage: UNK
     Route: 065
  5. Ezerosu 10 mg/40 mg - film-coated tablets [Concomitant]
     Indication: Product used for unknown indication
     Dosage: UNK
     Route: 065
  6. Jardiance 25 mg - film-coated tablets [Concomitant]
     Indication: Product used for unknown indication
     Dosage: UNK
     Route: 065
  7. EDOXABAN TOSYLATE [Concomitant]
     Active Substance: EDOXABAN TOSYLATE
     Indication: Product used for unknown indication
     Dosage: UNK
     Route: 065

REACTIONS (5)
  - Somnolence [Recovered/Resolved]
  - Gastrointestinal disorder [Recovered/Resolved]
  - Malaise [Recovered/Resolved]
  - Loss of personal independence in daily activities [Recovered/Resolved]
  - Nausea [Recovered/Resolved]

NARRATIVE: CASE EVENT DATE: 20230501
